FAERS Safety Report 4315257-5 (Version None)
Quarter: 2004Q1

REPORT INFORMATION
  Report Type: 
  Country: None (occurrence: None)
  Receive Date: 20040309
  Receipt Date: 20040224
  Transmission Date: 20041129
  Serious: Yes (Life-Threatening)
  Sender: FDA-Public Use
  Company Number: EWC040238163

PATIENT
  Age: 63 Year
  Sex: Female

DRUGS (2)
  1. FORSTEO(TERIPARATIDE) [Suspect]
     Dates: start: 20031201
  2. SELOZOK (METOPROLOL SUCCINATE) [Concomitant]

REACTIONS (2)
  - DEPRESSION [None]
  - SUICIDE ATTEMPT [None]
